FAERS Safety Report 15082703 (Version 2)
Quarter: 2018Q3

REPORT INFORMATION
  Report Type: Spontaneous
  Country: US (occurrence: US)
  Receive Date: 20180628
  Receipt Date: 20180723
  Transmission Date: 20181010
  Serious: Yes (Hospitalization, Other)
  Sender: FDA-Public Use
  Company Number: US-MYLANLABS-2018M1044999

PATIENT
  Sex: Male
  Weight: 36 kg

DRUGS (5)
  1. METHYLPHENIDATE. [Suspect]
     Active Substance: METHYLPHENIDATE
     Indication: PSYCHOMOTOR HYPERACTIVITY
  2. METHYLPHENIDATE. [Suspect]
     Active Substance: METHYLPHENIDATE
     Indication: DISTURBANCE IN ATTENTION
     Dosage: 1 DF, QD
     Route: 048
     Dates: start: 201511
  3. RISPERIDONE TABLETS, USP [Suspect]
     Active Substance: RISPERIDONE
     Indication: ATTENTION DEFICIT/HYPERACTIVITY DISORDER
     Dosage: 0.25 MG, PM
     Route: 048
  4. RISPERIDONE TABLETS, USP [Suspect]
     Active Substance: RISPERIDONE
     Indication: SLEEP DISORDER
     Dosage: 0.5 MG, AM
     Route: 048
     Dates: start: 2016
  5. RISPERIDONE TABLETS, USP [Suspect]
     Active Substance: RISPERIDONE
     Indication: SLEEP DISORDER

REACTIONS (14)
  - Product use in unapproved indication [Not Recovered/Not Resolved]
  - Suicidal ideation [Not Recovered/Not Resolved]
  - Inappropriate schedule of drug administration [Not Recovered/Not Resolved]
  - Feeding disorder [Not Recovered/Not Resolved]
  - Product storage error [Not Recovered/Not Resolved]
  - Homicidal ideation [Not Recovered/Not Resolved]
  - Loss of consciousness [Not Recovered/Not Resolved]
  - Weight decreased [Not Recovered/Not Resolved]
  - Decreased appetite [Not Recovered/Not Resolved]
  - Condition aggravated [Not Recovered/Not Resolved]
  - Aggression [Not Recovered/Not Resolved]
  - Drug withdrawal syndrome [Not Recovered/Not Resolved]
  - Suicide threat [Not Recovered/Not Resolved]
  - Concussion [Not Recovered/Not Resolved]

NARRATIVE: CASE EVENT DATE: 2018
